FAERS Safety Report 9587631 (Version 1)
Quarter: 2013Q4

REPORT INFORMATION
  Report Type: Spontaneous
  Country: US (occurrence: US)
  Receive Date: 20131003
  Receipt Date: 20131003
  Transmission Date: 20140711
  Serious: Yes (Hospitalization)
  Sender: FDA-Public Use
  Company Number: US-COVIDIEN/TYCO HEALTHCARE/MALLINCKRODT-T201203678

PATIENT
  Age: 50 Year
  Sex: Female

DRUGS (6)
  1. EXALGO EXTENDED RELEASE [Suspect]
     Indication: BACK PAIN
     Dosage: TOOK APPROX. 20-12 MG TABLETS
     Route: 048
     Dates: start: 2012, end: 2012
  2. EXALGO EXTENDED RELEASE [Suspect]
     Dosage: 12 MG, QD
     Route: 048
     Dates: start: 2012, end: 2012
  3. PERCOCET /00867901/ [Suspect]
     Indication: BREAKTHROUGH PAIN
     Dosage: TOOK APPROX, 30-5/325 MG,
  4. PERCOCET /00867901/ [Suspect]
     Dosage: 5/325 MG, 4 PER DAY
  5. XANAX [Suspect]
     Dosage: TOOK APPROX. 30-1MG
  6. VICODIN [Concomitant]
     Dosage: 10 MG, 6 PER DAY

REACTIONS (1)
  - Intentional overdose [Recovered/Resolved]
